FAERS Safety Report 15389143 (Version 1)
Quarter: 2018Q4

REPORT INFORMATION
  Report Type: Spontaneous
  Country: MX (occurrence: MX)
  Receive Date: 20180917
  Receipt Date: 20180917
  Transmission Date: 20190204
  Serious: Yes (Death, Other)
  Sender: FDA-Public Use
  Company Number: MX-TAKEDA-2018TUS027350

PATIENT
  Age: 44 Year
  Sex: Male
  Weight: 70 kg

DRUGS (3)
  1. TURAZIVE [Suspect]
     Active Substance: FEBUXOSTAT
     Indication: HYPERURICAEMIA
     Dosage: 80 MG, QD
     Route: 048
     Dates: start: 20180823
  2. TURAZIVE [Suspect]
     Active Substance: FEBUXOSTAT
     Indication: GOUT
     Dosage: 80 MG, BID
     Route: 048
     Dates: start: 20180827
  3. TURAZIVE [Suspect]
     Active Substance: FEBUXOSTAT
     Dosage: 80 MG, TID
     Route: 048
     Dates: start: 20180905

REACTIONS (2)
  - Acute myocardial infarction [Fatal]
  - Overdose [Fatal]

NARRATIVE: CASE EVENT DATE: 20180906
